FAERS Safety Report 8357162-3 (Version None)
Quarter: 2012Q2

REPORT INFORMATION
  Report Type: 
  Country: None (occurrence: None)
  Receive Date: 20120510
  Receipt Date: 20120503
  Transmission Date: 20120825
  Serious: Yes (Death)
  Sender: FDA-Public Use
  Company Number: DSA_48827_2012

PATIENT
  Sex: Female

DRUGS (6)
  1. XENAZINE [Suspect]
     Indication: HUNTINGTON'S DISEASE
     Dosage: (12.5 MG BID ORAL), (25 MG BID ORAL)
     Route: 048
     Dates: start: 20090604
  2. NAMENDA [Concomitant]
  3. SERTRALINE HYDROCHLORIDE [Concomitant]
  4. MULTI-VITAMINS [Concomitant]
  5. CALCIUM WITH VITAMIN D /01233101/ [Concomitant]
  6. IMODIUM [Concomitant]

REACTIONS (17)
  - DEMENTIA [None]
  - FALL [None]
  - COGNITIVE DISORDER [None]
  - DYSKINESIA [None]
  - COUGH [None]
  - DIARRHOEA [None]
  - MASKED FACIES [None]
  - DYSPHAGIA [None]
  - ACTIVITIES OF DAILY LIVING IMPAIRED [None]
  - DRUG INEFFECTIVE [None]
  - CHOKING [None]
  - SLOW SPEECH [None]
  - DYSARTHRIA [None]
  - BRADYKINESIA [None]
  - IMPAIRED SELF-CARE [None]
  - APATHY [None]
  - GAIT DISTURBANCE [None]
